FAERS Safety Report 4346453-9 (Version None)
Quarter: 2004Q2

REPORT INFORMATION
  Report Type: 
  Country: None (occurrence: None)
  Receive Date: 20040426
  Receipt Date: 20030313
  Transmission Date: 20050107
  Serious: No
  Sender: FDA-Public Use
  Company Number: US-BRISTOL-MYERS SQUIBB COMPANY-12213070

PATIENT
  Age: 43 Year
  Sex: Female
  Weight: 48 kg

DRUGS (6)
  1. PARAPLATIN [Suspect]
     Indication: OVARIAN CANCER
     Route: 042
     Dates: start: 20030312, end: 20030312
  2. TAXOL [Concomitant]
     Indication: OVARIAN CANCER
     Route: 042
  3. ZANTAC [Concomitant]
     Indication: PREMEDICATION
  4. DECADRON [Concomitant]
     Indication: PREMEDICATION
  5. BENADRYL [Concomitant]
     Indication: PREMEDICATION
  6. KYTRIL [Concomitant]
     Indication: PREMEDICATION

REACTIONS (1)
  - INJECTION SITE REACTION [None]
